FAERS Safety Report 7406626-5 (Version None)
Quarter: 2011Q2

REPORT INFORMATION
  Report Type: 
  Country: None (occurrence: None)
  Receive Date: 20110411
  Receipt Date: 20110330
  Transmission Date: 20111010
  Serious: Yes (Death, Other)
  Sender: FDA-Public Use
  Company Number: IT-BRISTOL-MYERS SQUIBB COMPANY-15646888

PATIENT
  Age: 85 Year
  Sex: Female

DRUGS (12)
  1. CONGESCOR [Concomitant]
  2. DELTACORTENE [Concomitant]
     Dosage: TABS
  3. ISOPTIN [Concomitant]
     Dosage: FILM COATED TABS
  4. FERROGRAD C [Concomitant]
  5. COUMADIN [Suspect]
     Indication: ISCHAEMIC STROKE
     Route: 048
     Dates: start: 20080101, end: 20110325
  6. STILNOX [Concomitant]
  7. ALDACTONE [Concomitant]
  8. EUTIROX [Concomitant]
     Dosage: TABS
  9. XANAX [Concomitant]
     Dosage: TABS
  10. FLIXOTIDE [Concomitant]
  11. LASIX [Concomitant]
     Dosage: TABS
  12. SPIRIVA [Concomitant]

REACTIONS (3)
  - DEATH [None]
  - HYPOCOAGULABLE STATE [None]
  - INTERNATIONAL NORMALISED RATIO INCREASED [None]
